FAERS Safety Report 13205898 (Version 1)
Quarter: 2017Q1

REPORT INFORMATION
  Report Type: Spontaneous
  Country: US (occurrence: US)
  Receive Date: 20170208
  Receipt Date: 20170208
  Transmission Date: 20170428
  Serious: Yes (Life-Threatening, Hospitalization, Disabling)
  Sender: FDA-Public Use
  Company Number: None

PATIENT
  Age: 81 Year
  Sex: Female
  Weight: 52.65 kg

DRUGS (1)
  1. NAMENDA [Suspect]
     Active Substance: MEMANTINE HYDROCHLORIDE
     Indication: VASCULAR DEMENTIA
     Dosage: ?          QUANTITY:1 TABLET(S);?
     Route: 048
     Dates: start: 20160523, end: 20161207

REACTIONS (5)
  - Cerebrovascular accident [None]
  - Hip fracture [None]
  - Gastrointestinal haemorrhage [None]
  - Haemoglobin decreased [None]
  - General physical health deterioration [None]

NARRATIVE: CASE EVENT DATE: 20161207
